FAERS Safety Report 23245720 (Version 1)
Quarter: 2023Q4

REPORT INFORMATION
  Report Type: Spontaneous
  Country: US (occurrence: US)
  Receive Date: 20231130
  Receipt Date: 20231130
  Transmission Date: 20240110
  Serious: No
  Sender: FDA-Public Use
  Company Number: US-ALVOGEN-2023091836

PATIENT
  Sex: Male

DRUGS (1)
  1. TERIPARATIDE [Suspect]
     Active Substance: TERIPARATIDE
     Indication: Product used for unknown indication
     Dosage: EXPIRATION DATE: UU-AUG-2024

REACTIONS (5)
  - Feeling hot [Recovered/Resolved]
  - Flushing [Recovered/Resolved]
  - Accidental overdose [Unknown]
  - Device malfunction [Unknown]
  - Device operational issue [Unknown]
